FAERS Safety Report 6223065-3 (Version None)
Quarter: 2009Q2

REPORT INFORMATION
  Report Type: 
  Country: None (occurrence: None)
  Receive Date: 20090611
  Receipt Date: 20090601
  Transmission Date: 20091009
  Serious: Yes (Other)
  Sender: FDA-Public Use
  Company Number: FI-PFIZER INC-2009199773

PATIENT

DRUGS (6)
  1. GABAPENTIN [Suspect]
     Indication: HEADACHE
     Dosage: UNK
     Route: 048
     Dates: start: 20020101, end: 20090101
  2. GABAPENTIN [Suspect]
     Indication: NEURALGIA
  3. NEXIUM [Concomitant]
     Indication: DYSPEPSIA
     Dosage: UNK
     Route: 048
  4. NEXIUM [Concomitant]
     Indication: GASTROOESOPHAGEAL REFLUX DISEASE
  5. PARAMAX [Concomitant]
     Dosage: UNK
     Route: 048
  6. DICLOMEX [Concomitant]
     Indication: PAIN
     Dosage: UNK
     Route: 048

REACTIONS (5)
  - INTESTINAL OBSTRUCTION [None]
  - NEURALGIA [None]
  - NEURITIS [None]
  - URINARY RETENTION [None]
  - WEIGHT DECREASED [None]
